FAERS Safety Report 10037474 (Version 1)
Quarter: 2014Q1

REPORT INFORMATION
  Report Type: Spontaneous
  Country: US (occurrence: None)
  Receive Date: 20140324
  Receipt Date: 20140324
  Transmission Date: 20141002
  Serious: Yes (Hospitalization)
  Sender: FDA-Public Use
  Company Number: DELA20140002

PATIENT
  Age: 42 Year
  Sex: Male
  Weight: 90 kg

DRUGS (7)
  1. DELATESTRYL [Suspect]
     Indication: DRUG ABUSE
  2. TESTOSTERONE ACETATE [Suspect]
     Indication: DRUG ABUSE
  3. TESTOSTERONE CYPIONATE [Suspect]
     Indication: DRUG ABUSE
  4. TESTOSTERONE DECANOATE [Suspect]
     Indication: DRUG ABUSE
  5. TESTOSTERONE PROPIONATE [Suspect]
     Indication: DRUG ABUSE
  6. TESTOSTERONE ISOCAPROATE [Suspect]
     Indication: DRUG ABUSE
  7. TESTOSTERONE PHENYLPROPIONATE [Suspect]
     Indication: DRUG ABUSE

REACTIONS (33)
  - Nausea [None]
  - Vomiting [None]
  - Diarrhoea [None]
  - Dyspnoea [None]
  - Productive cough [None]
  - Hypoxia [None]
  - Supraventricular tachycardia [None]
  - Atrial flutter [None]
  - Pneumonia [None]
  - Acute respiratory distress syndrome [None]
  - White blood cell count increased [None]
  - Blood bilirubin increased [None]
  - Blood glucose increased [None]
  - Aspartate aminotransferase increased [None]
  - Alanine aminotransferase increased [None]
  - Hypotension [None]
  - Oedema [None]
  - Blood potassium increased [None]
  - Blood lactic acid increased [None]
  - Haemoglobin decreased [None]
  - Haematocrit decreased [None]
  - Fluid overload [None]
  - Renal failure acute [None]
  - Continuous haemodiafiltration [None]
  - Platelet count decreased [None]
  - Platelet count increased [None]
  - Multi-organ disorder [None]
  - Hepatic function abnormal [None]
  - Sepsis [None]
  - Hepatic congestion [None]
  - Systemic inflammatory response syndrome [None]
  - Blood pH decreased [None]
  - Base excess decreased [None]
